FAERS Safety Report 6958958-2 (Version None)
Quarter: 2010Q3

REPORT INFORMATION
  Report Type: 
  Country: None (occurrence: None)
  Receive Date: 20100831
  Receipt Date: 20100823
  Transmission Date: 20110219
  Serious: Yes (Other)
  Sender: FDA-Public Use
  Company Number: US-PFIZER INC-2010106741

PATIENT
  Sex: Female
  Weight: 68.027 kg

DRUGS (2)
  1. CELEBREX [Suspect]
     Indication: PAIN
     Dosage: 100 MG, 1X/DAY
     Route: 048
     Dates: end: 20080301
  2. CELEBREX [Suspect]
     Indication: FIBROMYALGIA

REACTIONS (6)
  - APHAGIA [None]
  - ASTHENIA [None]
  - HYPERTENSION [None]
  - MALAISE [None]
  - PAROSMIA [None]
  - WEIGHT DECREASED [None]
